FAERS Safety Report 14385107 (Version 1)
Quarter: 2018Q1

REPORT INFORMATION
  Report Type: Other
  Country: US (occurrence: US)
  Receive Date: 20180115
  Receipt Date: 20180115
  Transmission Date: 20180509
  Serious: Yes (Death)
  Sender: FDA-Public Use
  Company Number: US-OSMOTICA_PHARMACEUTICAL_US_LLC-POI0573201800014

PATIENT
  Age: 55 Year
  Sex: Female

DRUGS (5)
  1. ACETAMINOPHEN. [Suspect]
     Active Substance: ACETAMINOPHEN
     Dates: end: 2016
  2. CARBON MONOXIDE [Suspect]
     Active Substance: CARBON MONOXIDE
     Dates: end: 2016
  3. BENZODIAZEPINE [Suspect]
     Active Substance: BENZODIAZEPINE
     Dates: end: 2016
  4. HYDROMORPHONE HYDROCHLORIDE EXTENDED-RELEASE [Suspect]
     Active Substance: HYDROMORPHONE HYDROCHLORIDE
     Dates: end: 2016
  5. HYDROCODONE [Suspect]
     Active Substance: HYDROCODONE
     Dates: end: 2016

REACTIONS (3)
  - Completed suicide [Fatal]
  - Cardiac arrest [Fatal]
  - Respiratory arrest [Fatal]

NARRATIVE: CASE EVENT DATE: 2016
